FAERS Safety Report 10158610 (Version 1)
Quarter: 2014Q2

REPORT INFORMATION
  Report Type: Spontaneous
  Country: IN (occurrence: IN)
  Receive Date: 20140508
  Receipt Date: 20140508
  Transmission Date: 20141212
  Serious: Yes (Other)
  Sender: FDA-Public Use
  Company Number: PHHY2014IN054366

PATIENT
  Age: 42 Year
  Sex: Male

DRUGS (2)
  1. LIDOCAINE [Suspect]
     Indication: ARTERIAL SPASM
     Dosage: 60 MG, UNK
     Route: 042
  2. HEPARIN [Suspect]
     Indication: ARTERIAL SPASM
     Dosage: 5000 IU, UNK
     Route: 013

REACTIONS (1)
  - Gangrene [Unknown]
